FAERS Safety Report 25146678 (Version 1)
Quarter: 2025Q2

REPORT INFORMATION
  Report Type: Report from Study
  Country: KR (occurrence: KR)
  Receive Date: 20250401
  Receipt Date: 20250401
  Transmission Date: 20250717
  Serious: Yes (Other)
  Sender: JOHNSON AND JOHNSON
  Company Number: KR-JNJFOC-20250369202

PATIENT

DRUGS (10)
  1. GOLIMUMAB [Suspect]
     Active Substance: GOLIMUMAB
     Indication: Axial spondyloarthritis
     Route: 058
  2. REMICADE [Suspect]
     Active Substance: INFLIXIMAB
     Indication: Axial spondyloarthritis
     Route: 041
  3. ETANERCEPT [Suspect]
     Active Substance: ETANERCEPT
     Indication: Axial spondyloarthritis
  4. ADALIMUMAB [Suspect]
     Active Substance: ADALIMUMAB
     Indication: Axial spondyloarthritis
  5. SECUKINUMAB [Suspect]
     Active Substance: SECUKINUMAB
     Indication: Axial spondyloarthritis
  6. IXEKIZUMAB [Suspect]
     Active Substance: IXEKIZUMAB
     Indication: Axial spondyloarthritis
  7. CERTOLIZUMAB PEGOL [Suspect]
     Active Substance: CERTOLIZUMAB PEGOL
     Indication: Axial spondyloarthritis
  8. SULFASALAZINE [Suspect]
     Active Substance: SULFASALAZINE
  9. METHOTREXATE [Concomitant]
     Active Substance: METHOTREXATE
  10. LEFLUNOMIDE [Concomitant]
     Active Substance: LEFLUNOMIDE

REACTIONS (11)
  - Pneumonia [Unknown]
  - Lower respiratory tract infection [Unknown]
  - Tuberculosis [Unknown]
  - Osteomyelitis [Unknown]
  - Central nervous system infection [Unknown]
  - Skin infection [Unknown]
  - Upper respiratory tract infection [Unknown]
  - Gastrointestinal infection [Unknown]
  - Herpes zoster [Unknown]
  - COVID-19 [Unknown]
  - Genitourinary tract infection [Unknown]
